FAERS Safety Report 4362561-0 (Version None)
Quarter: 2004Q2

REPORT INFORMATION
  Report Type: 
  Country: None (occurrence: None)
  Receive Date: 20040517
  Receipt Date: 20040203
  Transmission Date: 20050107
  Serious: Yes (Disabling)
  Sender: FDA-Public Use
  Company Number: S04-USA-00416-01

PATIENT
  Age: 82 Year
  Sex: Female

DRUGS (17)
  1. MEMANTINE HCL [Suspect]
     Indication: DEMENTIA ALZHEIMER'S TYPE
  2. MEMANTINE HCL [Suspect]
     Indication: DEMENTIA ALZHEIMER'S TYPE
     Dosage: 10 MG BID PO
     Route: 048
  3. ARICEPT [Concomitant]
  4. FOSAMAX [Concomitant]
  5. CALCITONIN [Concomitant]
  6. MENEST [Concomitant]
  7. AMIODARONE HCL [Concomitant]
  8. NEXIUM [Concomitant]
  9. CELEXA [Concomitant]
  10. TYLENOL [Concomitant]
  11. CALCIUM [Concomitant]
  12. MAGNESIUM [Concomitant]
  13. VITAMIN E [Concomitant]
  14. FERROUS SULFATE TAB [Concomitant]
  15. MULTI-VITAMIN [Concomitant]
  16. ASPIRIN [Concomitant]
  17. MEMANTINE HCL [Suspect]
     Indication: DEMENTIA ALZHEIMER'S TYPE
     Dosage: 5 MG QD PO
     Route: 048
     Dates: start: 20031201

REACTIONS (3)
  - DIZZINESS [None]
  - FALL [None]
  - SKIN LACERATION [None]
